FAERS Safety Report 5270515-5 (Version None)
Quarter: 2007Q1

REPORT INFORMATION
  Report Type: 
  Country: None (occurrence: None)
  Receive Date: 20070315
  Receipt Date: 20070305
  Transmission Date: 20070707
  Serious: Yes (Death)
  Sender: FDA-Public Use
  Company Number: 070308-0000270

PATIENT
  Age: 1 Month
  Sex: Male

DRUGS (2)
  1. NEOPROFEN [Suspect]
     Indication: PATENT DUCTUS ARTERIOSUS
     Dosage: SEE IMAGE, IV
     Route: 042
     Dates: start: 20070203, end: 20070203
  2. NEOPROFEN [Suspect]
     Indication: PATENT DUCTUS ARTERIOSUS
     Dosage: SEE IMAGE, IV
     Route: 042
     Dates: start: 20070204, end: 20070205

REACTIONS (1)
  - NECROTISING COLITIS [None]
